FAERS Safety Report 21711345 (Version 1)
Quarter: 2022Q4

REPORT INFORMATION
  Report Type: Spontaneous
  Country: NL (occurrence: NL)
  Receive Date: 20221212
  Receipt Date: 20221212
  Transmission Date: 20230113
  Serious: Yes (Other)
  Sender: FDA-Public Use
  Company Number: NL-LRB-00852305

PATIENT
  Sex: Male
  Weight: 91 kg

DRUGS (4)
  1. BISOPROLOL FUMARATE [Suspect]
     Active Substance: BISOPROLOL FUMARATE
     Indication: Cardiac failure
     Dosage: 1.25 MILLIGRAM(TWEEMAAL DAAGS EEN HALF TAB)
     Route: 065
     Dates: start: 20220304
  2. SPIRONOLACTONE [Suspect]
     Active Substance: SPIRONOLACTONE
     Indication: Cardiac failure
     Dosage: 12.5 MILLIGRAM, EVERY OTHER DAY(OM DE DAG EEN HALF TAB)
     Route: 065
     Dates: start: 20220304
  3. DAPAGLIFLOZIN [Suspect]
     Active Substance: DAPAGLIFLOZIN
     Indication: Cardiac failure
     Dosage: 10 MILLIGRAM, ONCE A DAY(1X PER DAG 1 TAB)
     Route: 065
     Dates: start: 20220304
  4. SACUBITRIL\VALSARTAN [Suspect]
     Active Substance: SACUBITRIL\VALSARTAN
     Indication: Cardiac failure
     Dosage: 1 DOSAGE FORM(2 X PER DAG 1 TAB)
     Route: 065
     Dates: start: 20220304, end: 20221115

REACTIONS (2)
  - Aggression [Recovered/Resolved]
  - Delusion [Recovered/Resolved]
